FAERS Safety Report 19449352 (Version 2)
Quarter: 2021Q2

REPORT INFORMATION
  Report Type: Other
  Country: JP (occurrence: JP)
  Receive Date: 20210622
  Receipt Date: 20210630
  Transmission Date: 20210717
  Serious: Yes (Hospitalization)
  Sender: FDA-Public Use
  Company Number: JP-UROVANT SCIENCES GMBH-202106-URV-000266

PATIENT
  Age: 8 Decade
  Sex: Female

DRUGS (1)
  1. BEOVA TABLETS [Suspect]
     Active Substance: VIBEGRON
     Indication: POLLAKIURIA
     Dosage: 50 MG
     Route: 048

REACTIONS (5)
  - Altered state of consciousness [Recovering/Resolving]
  - Off label use [Unknown]
  - Hyperammonaemia [Recovering/Resolving]
  - Dysuria [Unknown]
  - Drug ineffective [Unknown]
